FAERS Safety Report 18811998 (Version 1)
Quarter: 2021Q1

REPORT INFORMATION
  Report Type: Spontaneous
  Country: US (occurrence: US)
  Receive Date: 20210129
  Receipt Date: 20210129
  Transmission Date: 20210419
  Serious: Yes (Hospitalization)
  Sender: FDA-Public Use
  Company Number: US-ELI_LILLY_AND_COMPANY-US202101011883

PATIENT
  Age: 60 Year
  Sex: Female

DRUGS (2)
  1. HUMALOG [Suspect]
     Active Substance: INSULIN LISPRO
     Indication: TYPE 2 DIABETES MELLITUS
     Dosage: UNK UNK, UNKNOWN
     Route: 065
  2. HUMALOG [Suspect]
     Active Substance: INSULIN LISPRO
     Indication: TYPE 2 DIABETES MELLITUS
     Dosage: UNK, UNKNOWN
     Route: 065
     Dates: start: 202002

REACTIONS (12)
  - Vomiting [Unknown]
  - Fatigue [Unknown]
  - Pulmonary hypertension [Unknown]
  - Panic attack [Unknown]
  - Sleep apnoea syndrome [Unknown]
  - Pyrexia [Unknown]
  - Dyspnoea [Unknown]
  - Blood pressure increased [Unknown]
  - Asthma [Unknown]
  - Colitis [Unknown]
  - Blood glucose increased [Unknown]
  - Hypopnoea [Unknown]

NARRATIVE: CASE EVENT DATE: 202001
